FAERS Safety Report 24657673 (Version 1)
Quarter: 2024Q4

REPORT INFORMATION
  Report Type: Spontaneous
  Country: US (occurrence: US)
  Receive Date: 20241125
  Receipt Date: 20241125
  Transmission Date: 20250114
  Serious: No
  Sender: AMGEN
  Company Number: US-AMGEN-USASP2024226889

PATIENT
  Age: 68 Year
  Sex: Female

DRUGS (1)
  1. KANJINTI [Suspect]
     Active Substance: TRASTUZUMAB-ANNS
     Indication: Breast neoplasm
     Dosage: 352 MILLIGRAM, (420 MG VIAL)
     Route: 065

REACTIONS (3)
  - Gingival swelling [Unknown]
  - Pain [Unknown]
  - Tooth disorder [Unknown]

NARRATIVE: CASE EVENT DATE: 20241113
